FAERS Safety Report 9678137 (Version 1)
Quarter: 2013Q4

REPORT INFORMATION
  Report Type: Spontaneous
  Country: US (occurrence: US)
  Receive Date: 20131108
  Receipt Date: 20131108
  Transmission Date: 20140711
  Serious: No
  Sender: FDA-Public Use
  Company Number: US-MYLANLABS-2013S1017477

PATIENT
  Age: 47 Year
  Sex: Female
  Weight: 87.09 kg

DRUGS (12)
  1. MODAFINIL TABLETS USP [Suspect]
     Indication: CATAPLEXY
     Route: 048
     Dates: start: 201306
  2. CARBAMAZEPINE [Concomitant]
     Indication: TRIGEMINAL NEURALGIA
     Route: 048
  3. COUMADIN [Concomitant]
     Indication: ANTICOAGULANT THERAPY
     Dosage: TO BE TAKEN AS DIRECTED
     Route: 048
  4. MIRAPEX [Concomitant]
     Indication: RESTLESS LEGS SYNDROME
     Route: 048
  5. LYRICA [Concomitant]
     Indication: FIBROMYALGIA
     Route: 048
  6. SYNTHROID [Concomitant]
     Indication: HYPOTHYROIDISM
     Route: 048
  7. LEXAPRO [Concomitant]
     Indication: DEPRESSION
     Route: 048
  8. B12 /00056201/ [Concomitant]
     Indication: OSTEOPOROSIS
     Dosage: 1 TABLET DAILY
     Route: 048
  9. PROAIR HFA [Concomitant]
     Indication: ASTHMA
     Route: 055
  10. ADVAIR [Concomitant]
     Indication: ASTHMA
     Route: 055
  11. SINGULAIR [Concomitant]
     Indication: ASTHMA
     Route: 048
  12. ZANAFLEX [Concomitant]
     Indication: MUSCLE SPASMS
     Route: 048

REACTIONS (2)
  - Drug ineffective [Not Recovered/Not Resolved]
  - Cataplexy [Not Recovered/Not Resolved]
